FAERS Safety Report 6267533-7 (Version None)
Quarter: 2009Q3

REPORT INFORMATION
  Report Type: 
  Country: None (occurrence: None)
  Receive Date: 20090714
  Receipt Date: 20090706
  Transmission Date: 20100115
  Serious: Yes (Death)
  Sender: FDA-Public Use
  Company Number: US-MERCK-0906USA04778

PATIENT
  Age: 62 Year
  Sex: Male

DRUGS (13)
  1. OXYCODONE [Concomitant]
     Route: 065
  2. MAXALT-MLT [Suspect]
     Route: 048
  3. REGLAN [Concomitant]
     Route: 065
  4. FENTANYL [Concomitant]
     Route: 061
  5. ZOFRAN [Concomitant]
     Route: 065
  6. NEXIUM [Concomitant]
     Route: 065
  7. NYSTATIN [Concomitant]
     Route: 065
  8. LOVENOX [Concomitant]
     Route: 058
  9. SUTENT [Concomitant]
     Route: 065
  10. FERROUS SULFATE [Concomitant]
     Route: 065
  11. CARAFATE [Concomitant]
     Route: 065
  12. CARAFATE [Concomitant]
     Route: 065
  13. MS CONTIN [Concomitant]
     Route: 065

REACTIONS (1)
  - GASTROINTESTINAL STROMAL TUMOUR [None]
